FAERS Safety Report 8014341-2 (Version None)
Quarter: 2011Q4

REPORT INFORMATION
  Report Type: 
  Country: None (occurrence: None)
  Receive Date: 20111229
  Receipt Date: 20111227
  Transmission Date: 20120403
  Serious: Yes (Life-Threatening)
  Sender: FDA-Public Use
  Company Number: IT-BAYER-2011-124047

PATIENT
  Age: 63 Year
  Sex: Male

DRUGS (2)
  1. RANITIDINE [Suspect]
     Indication: PROPHYLAXIS AGAINST GASTROINTESTINAL ULCER
     Dosage: DAILY DOSE 150 MG
     Route: 048
     Dates: start: 20100915, end: 20101110
  2. ASPIRIN [Suspect]
     Indication: ATRIAL FIBRILLATION
     Dosage: 100 MG, QD
     Route: 048
     Dates: start: 20100915, end: 20101110

REACTIONS (2)
  - THROMBOCYTOPENIA [None]
  - GINGIVAL BLEEDING [None]
